FAERS Safety Report 23381282 (Version 4)
Quarter: 2024Q3

REPORT INFORMATION
  Report Type: Report from Study
  Country: MX (occurrence: MX)
  Receive Date: 20240109
  Receipt Date: 20240813
  Transmission Date: 20241017
  Serious: No
  Sender: ROCHE
  Company Number: MX-ROCHE-3487775

PATIENT
  Age: 36 Year
  Sex: Male
  Weight: 70.0 kg

DRUGS (5)
  1. OCREVUS [Suspect]
     Active Substance: OCRELIZUMAB
     Indication: Multiple sclerosis
     Dosage: SUBSEQUENT DOSE ON 05/JUL/2023
     Route: 042
  2. OMEGA 3 [Concomitant]
     Active Substance: CAPSAICIN
     Indication: Nutritional supplementation
     Route: 048
     Dates: start: 20230620
  3. VITAMIN D3 [Concomitant]
     Active Substance: CHOLECALCIFEROL
     Indication: Nutritional supplementation
     Route: 048
     Dates: start: 20230620
  4. ACETAMINOPHEN\TRAMADOL [Concomitant]
     Active Substance: ACETAMINOPHEN\TRAMADOL
     Dosage: DOSE WAS NOT REPORTED. FREQUENCY: OCCASIONALLY.
  5. METHYLPREDNISOLONE [Concomitant]
     Active Substance: METHYLPREDNISOLONE

REACTIONS (9)
  - Influenza [Recovered/Resolved]
  - Oropharyngeal pain [Recovered/Resolved]
  - Rash [Recovered/Resolved]
  - Pruritus [Recovered/Resolved]
  - Oropharyngeal spasm [Recovered/Resolved]
  - Tongue pruritus [Recovered/Resolved]
  - Pain in extremity [Not Recovered/Not Resolved]
  - Eyelid ptosis [Not Recovered/Not Resolved]
  - Burning sensation [Not Recovered/Not Resolved]

NARRATIVE: CASE EVENT DATE: 20230705
